FAERS Safety Report 22355329 (Version 1)
Quarter: 2023Q2

REPORT INFORMATION
  Report Type: Spontaneous
  Country: US (occurrence: None)
  Receive Date: 20230522
  Receipt Date: 20230522
  Transmission Date: 20230721
  Serious: No
  Sender: FDA-Public Use
  Company Number: None

PATIENT
  Age: 41 Year
  Sex: Male
  Weight: 154.28 kg

DRUGS (2)
  1. VILAZODONE [Suspect]
     Active Substance: VILAZODONE
     Indication: Affect lability
     Dosage: OTHER QUANTITY : 2 TABS (20MG);?FREQUENCY : DAILY;?
     Route: 048
  2. VILAZODONE [Concomitant]
     Active Substance: VILAZODONE

REACTIONS (2)
  - Diarrhoea [None]
  - Muscle spasms [None]
